FAERS Safety Report 15339471 (Version 1)
Quarter: 2018Q3

REPORT INFORMATION
  Report Type: Report from Study
  Country: DE (occurrence: DE)
  Receive Date: 20180831
  Receipt Date: 20180831
  Transmission Date: 20181010
  Serious: Yes (Death)
  Sender: FDA-Public Use
  Company Number: PHHY2018DE018314

PATIENT
  Age: 76 Year
  Sex: Female
  Weight: 110 kg

DRUGS (2)
  1. TORASEMIDE [Concomitant]
     Active Substance: TORSEMIDE
     Indication: CARDIAC FAILURE
     Dosage: 20 MG, UNK
     Route: 065
     Dates: start: 20171211, end: 20171211
  2. ENTRESTO [Suspect]
     Active Substance: SACUBITRIL\VALSARTAN
     Indication: CARDIAC FAILURE
     Dosage: 1 DF (49MG SACUBITRIL AND 51MG VALSARTAN) (100MG), BID (1?0?1)
     Route: 048
     Dates: start: 20170612

REACTIONS (1)
  - Acute kidney injury [Fatal]

NARRATIVE: CASE EVENT DATE: 20180411
